FAERS Safety Report 4400735-0 (Version None)
Quarter: 2004Q3

REPORT INFORMATION
  Report Type: 
  Country: None (occurrence: None)
  Receive Date: 20040714
  Receipt Date: 20040623
  Transmission Date: 20050211
  Serious: Yes (Hospitalization)
  Sender: FDA-Public Use
  Company Number: 12623963

PATIENT
  Age: 63 Year
  Sex: Male

DRUGS (2)
  1. SUMACEF (CAPS (CEFADROXIL) [Suspect]
     Indication: BRONCHITIS ACUTE
     Dosage: 250 MG, ORAL
     Route: 048
     Dates: start: 20011012, end: 20011028
  2. PRANOPROFEN [Suspect]
     Indication: BRONCHITIS ACUTE

REACTIONS (2)
  - FLUSHING [None]
  - PYREXIA [None]
